FAERS Safety Report 9797548 (Version 2)
Quarter: 2014Q1

REPORT INFORMATION
  Report Type: Spontaneous
  Country: US (occurrence: US)
  Receive Date: 20140106
  Receipt Date: 20140206
  Transmission Date: 20141002
  Serious: Yes (Other)
  Sender: FDA-Public Use
  Company Number: PHEH2013US026335

PATIENT
  Age: 10 Year
  Sex: Male
  Weight: 30.5 kg

DRUGS (2)
  1. FOCALIN XR [Suspect]
     Indication: ATTENTION DEFICIT/HYPERACTIVITY DISORDER
     Dosage: 5 MG, UNK
     Route: 048
  2. FOCALIN XR [Suspect]
     Dosage: 10 MG, UNK
     Route: 048
     Dates: start: 20131218

REACTIONS (7)
  - Cerebral palsy [Unknown]
  - Obsessive-compulsive disorder [Unknown]
  - Feeling abnormal [Recovered/Resolved]
  - Crying [Unknown]
  - Anger [Unknown]
  - Insomnia [Unknown]
  - Therapeutic response unexpected [Unknown]
